FAERS Safety Report 6551341-3 (Version None)
Quarter: 2010Q1

REPORT INFORMATION
  Report Type: 
  Country: None (occurrence: None)
  Receive Date: 20100120
  Receipt Date: 20100113
  Transmission Date: 20100710
  Serious: Yes (Disabling, Other)
  Sender: FDA-Public Use
  Company Number: 2009SP036580

PATIENT
  Age: 62 Year
  Sex: Female
  Weight: 48 kg

DRUGS (4)
  1. DIPROSTENE (BETAMETHASONE SODIUM PHOSPHATE/DIPROPIONATE) (BETAMETHASON [Suspect]
     Indication: OSTEOARTHRITIS
     Dosage: 1 DF;ONCE; IA
     Route: 014
     Dates: start: 20091106, end: 20091106
  2. CRESTOR [Concomitant]
  3. MYOLASTAN [Concomitant]
  4. IXPRIM [Concomitant]

REACTIONS (2)
  - INSOMNIA [None]
  - RESTLESS LEGS SYNDROME [None]
